FAERS Safety Report 16087417 (Version 1)
Quarter: 2019Q1

REPORT INFORMATION
  Report Type: Spontaneous
  Country: FR (occurrence: FR)
  Receive Date: 20190319
  Receipt Date: 20190319
  Transmission Date: 20190418
  Serious: Yes (Hospitalization)
  Sender: FDA-Public Use
  Company Number: FR-TEVA-2019-FR-1027317

PATIENT
  Sex: Female

DRUGS (1)
  1. COPAXONE [Suspect]
     Active Substance: GLATIRAMER ACETATE
     Route: 065
     Dates: start: 201808

REACTIONS (7)
  - Malaise [Unknown]
  - Injection site pain [Not Recovered/Not Resolved]
  - Choking sensation [Unknown]
  - Feeling abnormal [Unknown]
  - Injection site mass [Not Recovered/Not Resolved]
  - Paraesthesia [Unknown]
  - Feeling hot [Unknown]
